FAERS Safety Report 5925617-4 (Version None)
Quarter: 2008Q4

REPORT INFORMATION
  Report Type: 
  Country: None (occurrence: None)
  Receive Date: 20081021
  Receipt Date: 20081017
  Transmission Date: 20090506
  Serious: Yes (Hospitalization)
  Sender: FDA-Public Use
  Company Number: B0542139A

PATIENT
  Age: 76 Year
  Sex: Female

DRUGS (22)
  1. ARIXTRA [Suspect]
     Indication: THROMBOSIS PROPHYLAXIS
     Dosage: 1.5MG PER DAY
     Route: 058
     Dates: start: 20080919, end: 20081002
  2. AUGMENTIN '125' [Concomitant]
     Indication: DRUG USE FOR UNKNOWN INDICATION
     Route: 048
     Dates: start: 20080922, end: 20081002
  3. ACTONEL [Concomitant]
     Route: 048
     Dates: start: 20080926, end: 20080926
  4. AMLODIN [Concomitant]
     Route: 048
     Dates: start: 20080910, end: 20081002
  5. FAMOTIDINE [Concomitant]
     Route: 048
     Dates: start: 20080910, end: 20081004
  6. SELBEX [Concomitant]
     Route: 048
     Dates: start: 20080910, end: 20081002
  7. HYPEN [Concomitant]
     Route: 048
     Dates: start: 20080905, end: 20081002
  8. MUCOSTA [Concomitant]
     Route: 048
     Dates: start: 20080905, end: 20081002
  9. MAGMITT [Concomitant]
     Route: 048
     Dates: start: 20080910, end: 20081002
  10. MEDICON [Concomitant]
     Route: 048
     Dates: start: 20080910, end: 20081002
  11. CYANOCOBALAMIN [Concomitant]
     Route: 048
     Dates: start: 20080910, end: 20081002
  12. ASPIRIN [Concomitant]
     Route: 048
     Dates: start: 20080927, end: 20081002
  13. CEFAZOLIN SODIUM [Concomitant]
     Route: 042
     Dates: start: 20080917, end: 20080919
  14. ATARAX [Concomitant]
     Dates: start: 20080917, end: 20080917
  15. UNKNOWN DRUG [Concomitant]
     Dates: start: 20081001, end: 20081002
  16. PHYSIOSOL [Concomitant]
     Dates: start: 20080906, end: 20080908
  17. PHYSIOSOL [Concomitant]
     Dates: start: 20080917, end: 20080918
  18. UNKNOWN DRUG [Concomitant]
     Dates: start: 20080919, end: 20080922
  19. UNKNOWN DRUG [Concomitant]
     Dates: start: 20081002, end: 20081002
  20. UNKNOWN DRUG [Concomitant]
     Dates: start: 20081003
  21. LACTEC [Concomitant]
     Dates: start: 20080905, end: 20081002
  22. ATROPINE [Concomitant]
     Dates: start: 20080917, end: 20080917

REACTIONS (6)
  - CEREBRAL INFARCTION [None]
  - DISORIENTATION [None]
  - ENCEPHALOPATHY [None]
  - EOSINOPHIL COUNT INCREASED [None]
  - PARALYSIS [None]
  - PSYCHIATRIC SYMPTOM [None]
